FAERS Safety Report 10053707 (Version 1)
Quarter: 2014Q2

REPORT INFORMATION
  Report Type: Spontaneous
  Country: GB (occurrence: GB)
  Receive Date: 20140402
  Receipt Date: 20140402
  Transmission Date: 20141212
  Serious: Yes (Other)
  Sender: FDA-Public Use
  Company Number: GB-JHP PHARMACEUTICALS, LLC-JHP201400115

PATIENT
  Age: 28 Year
  Sex: Male

DRUGS (5)
  1. KETALAR [Suspect]
     Indication: DRUG ABUSE
     Dosage: WEEKLY X 6 YEARS
  2. ECSTASY [Suspect]
     Indication: DRUG ABUSE
     Dosage: WEEKLY X 6 YEARS
  3. TRAZODONE [Concomitant]
     Indication: DEPRESSION
     Route: 048
  4. ALIMEMAZINE [Concomitant]
     Indication: INSOMNIA
     Dosage: 10 MG, DAILY
  5. AMPHETAMINE [Concomitant]
     Indication: DRUG ABUSE

REACTIONS (4)
  - Bladder wall calcification [Unknown]
  - Liver function test abnormal [Unknown]
  - Pelvic pain [Unknown]
  - Pollakiuria [Unknown]
